FAERS Safety Report 9697499 (Version 1)
Quarter: 2013Q4

REPORT INFORMATION
  Report Type: Report from Study
  Country: CO (occurrence: CO)
  Receive Date: 20131120
  Receipt Date: 20131120
  Transmission Date: 20140711
  Serious: Yes (Death)
  Sender: FDA-Public Use
  Company Number: CO-ROCHE-1305440

PATIENT
  Age: 78 Year
  Sex: Male

DRUGS (1)
  1. MABTHERA [Suspect]
     Indication: RHEUMATOID ARTHRITIS
     Route: 042
     Dates: start: 201103

REACTIONS (2)
  - Cardio-respiratory arrest [Fatal]
  - Respiratory failure [Fatal]
